FAERS Safety Report 15774939 (Version 1)
Quarter: 2018Q4

REPORT INFORMATION
  Report Type: Spontaneous
  Country: BR (occurrence: BR)
  Receive Date: 20181230
  Receipt Date: 20181230
  Transmission Date: 20190205
  Serious: Yes (Other)
  Sender: FDA-Public Use
  Company Number: BR-ROCHE-2236937

PATIENT

DRUGS (2)
  1. HYDROCORTISONE. [Concomitant]
     Active Substance: HYDROCORTISONE
  2. GAZYVA [Suspect]
     Active Substance: OBINUTUZUMAB
     Indication: PRODUCT USED FOR UNKNOWN INDICATION
     Dosage: 25MG/ML
     Route: 042

REACTIONS (5)
  - Hyperhidrosis [Unknown]
  - Pyrexia [Unknown]
  - Hyperaemia [Unknown]
  - Oxygen saturation decreased [Unknown]
  - Tremor [Unknown]

NARRATIVE: CASE EVENT DATE: 20180822
